FAERS Safety Report 8580133-9 (Version None)
Quarter: 2012Q3

REPORT INFORMATION
  Report Type: 
  Country: None (occurrence: None)
  Receive Date: 20120808
  Receipt Date: 20120803
  Transmission Date: 20120928
  Serious: Yes (Life-Threatening, Other)
  Sender: FDA-Public Use
  Company Number: JP-PFIZER INC-2012154022

PATIENT
  Age: 79 Year
  Sex: Male

DRUGS (8)
  1. SERMION [Concomitant]
     Dosage: 5 MG, 3X/DAY
     Route: 048
  2. JANUVIA [Concomitant]
     Dosage: 50 MG, 1X/DAY
     Route: 048
  3. LYRICA [Suspect]
     Dosage: 25 MG A DAY
  4. METFORMIN HCL [Concomitant]
     Dosage: 250 MG, 1X/DAY
     Route: 048
  5. AMARYL [Concomitant]
     Dosage: 1 MG, 1X/DAY
     Route: 048
  6. LYRICA [Suspect]
     Indication: SPINAL LIGAMENT OSSIFICATION
     Dosage: 50 MG, 2X/DAY
     Route: 048
     Dates: start: 20111001
  7. ZOLPIDEM [Concomitant]
     Dosage: 5 MG, 1X/DAY
     Route: 048
  8. LENDORMIN [Concomitant]
     Dosage: 0.25 MG, 1X/DAY
     Route: 048

REACTIONS (2)
  - ROAD TRAFFIC ACCIDENT [None]
  - SOMNOLENCE [None]
